FAERS Safety Report 5107510-2 (Version None)
Quarter: 2006Q3

REPORT INFORMATION
  Report Type: 
  Country: None (occurrence: None)
  Receive Date: 20060913
  Receipt Date: 20060913
  Transmission Date: 20061208
  Serious: Yes (Hospitalization)
  Sender: FDA-Public Use
  Company Number: None

PATIENT
  Age: 81 Year
  Sex: Female
  Weight: 54.8852 kg

DRUGS (11)
  1. FLUCONAZOLE [Suspect]
     Indication: SYSTEMIC CANDIDA
     Dosage: 400 MG QD IV
     Route: 042
     Dates: start: 20060814
  2. FLUCONAZOLE [Suspect]
     Indication: SYSTEMIC CANDIDA
     Dosage: 400 MG QD PO
     Route: 048
     Dates: start: 20060815
  3. NOVOLOG [Concomitant]
  4. ADVAIR DISKUS 100/50 [Concomitant]
  5. ALBUTEROL [Concomitant]
  6. IPRATROPIUM BROMIDE [Concomitant]
  7. ALPRAZOLAM [Concomitant]
  8. COUMADIN [Concomitant]
  9. COZAAR [Concomitant]
  10. DIGOXIN [Concomitant]
  11. SEE IMAGE (PER FDA ON SITE REP) [Concomitant]

REACTIONS (2)
  - RASH GENERALISED [None]
  - RASH PRURITIC [None]
